FAERS Safety Report 23905382 (Version 1)
Quarter: 2024Q2

REPORT INFORMATION
  Report Type: Spontaneous
  Country: US (occurrence: US)
  Receive Date: 20240527
  Receipt Date: 20240527
  Transmission Date: 20240716
  Serious: Yes (Death, Other)
  Sender: FDA-Public Use
  Company Number: US-DRL-USA-LIT/USA/24/0007428

PATIENT
  Age: 65 Year
  Sex: Male

DRUGS (4)
  1. DOXYCYCLINE [Suspect]
     Active Substance: DOXYCYCLINE\DOXYCYCLINE HYCLATE
     Indication: Vibrio vulnificus infection
     Dosage: EMPIRICAL DOXYCYCLINE
  2. VANCOMYCIN [Suspect]
     Active Substance: VANCOMYCIN
     Indication: Vibrio vulnificus infection
  3. PIPERACILLIN SODIUM\TAZOBACTAM SODIUM [Suspect]
     Active Substance: PIPERACILLIN SODIUM\TAZOBACTAM SODIUM
     Indication: Vibrio vulnificus infection
  4. HUMAN IMMUNOGLOBULIN G [Suspect]
     Active Substance: HUMAN IMMUNOGLOBULIN G
     Indication: Vibrio vulnificus infection
     Route: 042

REACTIONS (5)
  - Drug ineffective for unapproved indication [Fatal]
  - Lactic acidosis [Fatal]
  - Hepatic failure [Fatal]
  - Renal failure [Fatal]
  - Hyperkalaemia [Fatal]
